FAERS Safety Report 6391402-5 (Version None)
Quarter: 2009Q4

REPORT INFORMATION
  Report Type: 
  Country: None (occurrence: None)
  Receive Date: 20091007
  Receipt Date: 20090928
  Transmission Date: 20100525
  Serious: Yes (Other)
  Sender: FDA-Public Use
  Company Number: IE-ASTRAZENECA-2009SE16513

PATIENT
  Age: 68 Year
  Sex: Female

DRUGS (4)
  1. SEROQUEL [Suspect]
     Indication: SCHIZOPHRENIA, PARANOID TYPE
     Route: 048
  2. RIVOTRIL [Suspect]
     Indication: ANXIETY
     Route: 048
     Dates: start: 20080315, end: 20090917
  3. MIRTAZAPINE [Suspect]
     Indication: DEPRESSIVE SYMPTOM
     Route: 048
  4. DEPIXOL [Suspect]
     Indication: SCHIZOPHRENIA, PARANOID TYPE
     Dosage: 20MG/ML, 20 MG DAILY
     Route: 030

REACTIONS (2)
  - DEPRESSION [None]
  - HYPOAESTHESIA [None]
